FAERS Safety Report 6781265-8 (Version None)
Quarter: 2010Q2

REPORT INFORMATION
  Report Type: 
  Country: None (occurrence: None)
  Receive Date: 20100621
  Receipt Date: 20100608
  Transmission Date: 20101027
  Serious: Yes (Other)
  Sender: FDA-Public Use
  Company Number: PHHY2010DE37777

PATIENT
  Sex: Male

DRUGS (1)
  1. RITALIN [Suspect]
     Dosage: 20 MG, PER DAY
     Route: 048

REACTIONS (2)
  - ATRIOVENTRICULAR BLOCK FIRST DEGREE [None]
  - ATRIOVENTRICULAR BLOCK SECOND DEGREE [None]
